FAERS Safety Report 6161886-6 (Version None)
Quarter: 2009Q2

REPORT INFORMATION
  Report Type: 
  Country: None (occurrence: None)
  Receive Date: 20090421
  Receipt Date: 20090416
  Transmission Date: 20091009
  Serious: Yes (Other)
  Sender: FDA-Public Use
  Company Number: B0567724A

PATIENT
  Sex: Male
  Weight: 84 kg

DRUGS (5)
  1. RELENZA [Suspect]
     Dosage: 10MG TWICE PER DAY
     Route: 055
     Dates: start: 20090327, end: 20090327
  2. CALONAL [Concomitant]
     Dosage: 1200MG PER DAY
     Route: 048
     Dates: start: 20090327
  3. MEDICON [Concomitant]
     Dosage: 90MG PER DAY
     Route: 048
     Dates: start: 20090327
  4. ANHIBA [Concomitant]
     Route: 054
     Dates: start: 20090327
  5. HUSCODE [Concomitant]
     Dosage: 9.9ML PER DAY
     Route: 065
     Dates: start: 20090327

REACTIONS (2)
  - ABNORMAL BEHAVIOUR [None]
  - AGGRESSION [None]
